FAERS Safety Report 4750593-X (Version None)
Quarter: 2005Q3

REPORT INFORMATION
  Report Type: 
  Country: None (occurrence: None)
  Receive Date: 20050819
  Receipt Date: 20050809
  Transmission Date: 20060218
  Serious: Yes (Hospitalization, Other)
  Sender: FDA-Public Use
  Company Number: HQWYE798509AUG05

PATIENT
  Age: 54 Year
  Sex: Male

DRUGS (1)
  1. MINOCYCLINE HCL [Suspect]
     Indication: ACNE
     Dosage: 200 MG 1 X PER 1 DAY
     Route: 048
     Dates: start: 20050728, end: 20050728

REACTIONS (3)
  - OEDEMA [None]
  - RASH [None]
  - SHOCK [None]
